FAERS Safety Report 4275391-5 (Version None)
Quarter: 2004Q1

REPORT INFORMATION
  Report Type: 
  Country: None (occurrence: None)
  Receive Date: 20040116
  Receipt Date: 20040113
  Transmission Date: 20041129
  Serious: Yes (Death)
  Sender: FDA-Public Use
  Company Number: 2003-09-1237

PATIENT
  Sex: Female

DRUGS (1)
  1. ALBUTEROL [Suspect]
     Indication: ASTHMA
     Dosage: ORAL AER INH
     Route: 055
     Dates: start: 20010809

REACTIONS (2)
  - ASTHMA [None]
  - DRUG INEFFECTIVE [None]
